FAERS Safety Report 6373925-8 (Version None)
Quarter: 2009Q3

REPORT INFORMATION
  Report Type: 
  Country: None (occurrence: None)
  Receive Date: 20090924
  Receipt Date: 20090701
  Transmission Date: 20100115
  Serious: No
  Sender: FDA-Public Use
  Company Number: US-ASTRAZENECA-2009UW13289

PATIENT
  Age: 436 Month
  Sex: Male
  Weight: 148.8 kg

DRUGS (6)
  1. SEROQUEL [Suspect]
     Indication: BIPOLAR DISORDER
     Route: 048
     Dates: start: 20061001, end: 20090601
  2. SEROQUEL [Suspect]
     Route: 048
     Dates: start: 20090601
  3. TRILEPTAL [Concomitant]
  4. TRAZODONE [Concomitant]
     Indication: INSOMNIA
  5. MORPHINE [Concomitant]
  6. TESTOSTERONE [Concomitant]
     Indication: HORMONE REPLACEMENT THERAPY

REACTIONS (2)
  - SLEEP APNOEA SYNDROME [None]
  - WEIGHT INCREASED [None]
